FAERS Safety Report 17170259 (Version 1)
Quarter: 2019Q4

REPORT INFORMATION
  Report Type: Spontaneous
  Country: CA (occurrence: CA)
  Receive Date: 20191218
  Receipt Date: 20191218
  Transmission Date: 20200122
  Serious: Yes (Hospitalization)
  Sender: FDA-Public Use
  Company Number: CA-ACTELION PHARMACEUTICALS LTD.-A-US2019-191462

PATIENT
  Age: 46 Year
  Sex: Female

DRUGS (10)
  1. PARIET [Concomitant]
     Active Substance: RABEPRAZOLE SODIUM
  2. SLOW-K [Concomitant]
     Active Substance: POTASSIUM CHLORIDE
  3. VIT D [Concomitant]
     Active Substance: VITAMIN D NOS
  4. LASIX [Concomitant]
     Active Substance: FUROSEMIDE
  5. TYLENOL [Concomitant]
     Active Substance: ACETAMINOPHEN
  6. PREDNISONE. [Concomitant]
     Active Substance: PREDNISONE
  7. TRACLEER [Suspect]
     Active Substance: BOSENTAN
     Indication: PULMONARY ARTERIAL HYPERTENSION
     Dosage: 125 MG, BID
     Route: 048
     Dates: start: 20180301
  8. RITUXIMAB. [Concomitant]
     Active Substance: RITUXIMAB
  9. SEPTRA DS [Concomitant]
     Active Substance: SULFAMETHOXAZOLE\TRIMETHOPRIM
  10. FOLIC ACID. [Concomitant]
     Active Substance: FOLIC ACID

REACTIONS (3)
  - Product dose omission [Not Recovered/Not Resolved]
  - Hospitalisation [Not Recovered/Not Resolved]
  - Influenza [Not Recovered/Not Resolved]

NARRATIVE: CASE EVENT DATE: 20190518
